FAERS Safety Report 18577508 (Version 1)
Quarter: 2020Q4

REPORT INFORMATION
  Report Type: Spontaneous
  Country: US (occurrence: US)
  Receive Date: 20201203
  Receipt Date: 20201203
  Transmission Date: 20210114
  Serious: Yes (Hospitalization, Other)
  Sender: FDA-Public Use
  Company Number: US-009507513-2011USA014878

PATIENT
  Age: 63 Year
  Sex: Female
  Weight: 86.9 kg

DRUGS (49)
  1. ARIMIDEX [Suspect]
     Active Substance: ANASTROZOLE
     Indication: BREAST CANCER RECURRENT
     Dosage: UNK
     Route: 048
     Dates: start: 200410, end: 200605
  2. LASIX [Concomitant]
     Active Substance: FUROSEMIDE
  3. VITAMINS (UNSPECIFIED) [Concomitant]
     Active Substance: VITAMINS
  4. ACETAMINOPHEN (+) HYDROCODONE BITARTRATE [Concomitant]
     Active Substance: ACETAMINOPHEN\HYDROCODONE BITARTRATE
     Indication: PAIN
     Dosage: 7.5/500 MG ONE TO TWO TABLETS BY MOUTH EVERY 6 HOURS
     Route: 048
  5. PRAVASTATIN SODIUM. [Concomitant]
     Active Substance: PRAVASTATIN SODIUM
     Route: 048
  6. FLEXERIL [Concomitant]
     Active Substance: CYCLOBENZAPRINE HYDROCHLORIDE
     Dosage: 10
  7. NEURONTIN [Concomitant]
     Active Substance: GABAPENTIN
     Dosage: 400
  8. VICODIN [Concomitant]
     Active Substance: ACETAMINOPHEN\HYDROCODONE BITARTRATE
  9. COUMADIN [Concomitant]
     Active Substance: WARFARIN SODIUM
     Dosage: UNK
     Route: 048
     Dates: start: 2008
  10. LYRICA [Concomitant]
     Active Substance: PREGABALIN
     Dosage: 4 DOSAGE FORM, QD
     Route: 048
  11. LIDODERM [Concomitant]
     Active Substance: LIDOCAINE
     Dosage: FIVE PERCENT EXTERNAL PATCH APPLY ONE PATCH TO AFFECTED AREA 12 HRS ON/12 HRS OFF
  12. VALIUM [Concomitant]
     Active Substance: DIAZEPAM
     Route: 048
  13. CRESTOR [Suspect]
     Active Substance: ROSUVASTATIN CALCIUM
     Route: 048
  14. PRILOSEC [Concomitant]
     Active Substance: OMEPRAZOLE MAGNESIUM
  15. COUMADIN [Concomitant]
     Active Substance: WARFARIN SODIUM
     Indication: DEEP VEIN THROMBOSIS
     Dosage: 7.5 MG TAKE AS DIRECTED
     Route: 048
  16. TOBRAMYCIN SULFATE. [Concomitant]
     Active Substance: TOBRAMYCIN SULFATE
     Dosage: 0.3 PERCENT INSTILL ONE DROP INTO AFFECTED EYE FOUR TIMES DAILY
     Route: 047
  17. HYDROMORPHONE HYDROCHLORIDE. [Concomitant]
     Active Substance: HYDROMORPHONE HYDROCHLORIDE
     Indication: PAIN
     Dosage: TAKE ONE TO TWO TABLETS EVERY FOUR HOUR AS NEEDED
     Route: 048
  18. XELODA [Concomitant]
     Active Substance: CAPECITABINE
     Dosage: TAKE TWO TABLETS IN THE MORNING AND ONE TABLET IN THE EVENING FOR TWO WEEKS THEN ONE WEEK OFF
     Route: 048
  19. ZOCOR [Concomitant]
     Active Substance: SIMVASTATIN
     Dosage: 20
  20. VITAMINS (UNSPECIFIED) [Concomitant]
     Active Substance: VITAMINS
  21. NEXIUM [Suspect]
     Active Substance: ESOMEPRAZOLE MAGNESIUM
     Indication: GASTROOESOPHAGEAL REFLUX DISEASE
     Dosage: 40 MILLIGRAM, QD
     Route: 048
  22. ALLEGRA [Concomitant]
     Active Substance: FEXOFENADINE HYDROCHLORIDE
  23. FLONASE [Concomitant]
     Active Substance: FLUTICASONE PROPIONATE
     Dosage: 50 MCG/ACT TWO EVERY MORNING
     Route: 045
  24. WELCHOL [Concomitant]
     Active Substance: COLESEVELAM HYDROCHLORIDE
     Route: 048
  25. FUROSEMIDE. [Concomitant]
     Active Substance: FUROSEMIDE
     Route: 048
  26. PLAVIX [Concomitant]
     Active Substance: CLOPIDOGREL BISULFATE
     Route: 048
  27. TRAMADOL HYDROCHLORIDE. [Concomitant]
     Active Substance: TRAMADOL HYDROCHLORIDE
     Indication: PAIN
     Dosage: 50 MG FOUR TO SIX HOURS AS NEEDED
     Route: 048
  28. CETYLPYRIDINIUM CHLORIDE. [Concomitant]
     Active Substance: CETYLPYRIDINIUM CHLORIDE
  29. ARIMIDEX [Suspect]
     Active Substance: ANASTROZOLE
     Indication: BREAST CANCER
     Dosage: UNK
     Route: 048
     Dates: start: 200410, end: 200605
  30. FASLODEX [Suspect]
     Active Substance: FULVESTRANT
     Indication: BREAST CANCER
     Route: 030
  31. CATAPRES [Concomitant]
     Active Substance: CLONIDINE HYDROCHLORIDE
  32. FOSAMAX [Concomitant]
     Active Substance: ALENDRONATE SODIUM
  33. COUMADIN [Concomitant]
     Active Substance: WARFARIN SODIUM
     Dosage: UNK
     Route: 048
     Dates: start: 2008
  34. LYRICA [Concomitant]
     Active Substance: PREGABALIN
     Dosage: 2 DOSAGE FORM, QD
     Route: 048
  35. LIPITOR [Concomitant]
     Active Substance: ATORVASTATIN CALCIUM
     Route: 048
  36. HYDROCHLOROTHIAZIDE. [Concomitant]
     Active Substance: HYDROCHLOROTHIAZIDE
  37. PRINIVIL [Suspect]
     Active Substance: LISINOPRIL
     Route: 048
  38. TOPROL XL [Suspect]
     Active Substance: METOPROLOL SUCCINATE
     Indication: BLOOD PRESSURE ABNORMAL
     Dosage: 50 MILLIGRAM
     Route: 048
  39. LOTENSIN [Concomitant]
     Active Substance: BENAZEPRIL HYDROCHLORIDE
  40. NORVASC [Concomitant]
     Active Substance: AMLODIPINE BESYLATE
  41. LIDOCAINE. [Concomitant]
     Active Substance: LIDOCAINE
     Route: 048
  42. TOPROL XL [Suspect]
     Active Substance: METOPROLOL SUCCINATE
     Dosage: 50 MILLIGRAM
     Route: 048
  43. ATARAX [Concomitant]
     Active Substance: HYDROXYZINE HYDROCHLORIDE
  44. COUMADIN [Concomitant]
     Active Substance: WARFARIN SODIUM
     Indication: THROMBOSIS
     Dosage: 7.5 MG TAKE AS DIRECTED
     Route: 048
  45. TYLENOL [Concomitant]
     Active Substance: ACETAMINOPHEN
     Dosage: RPT
  46. LYRICA [Concomitant]
     Active Substance: PREGABALIN
     Dosage: 1 DOSAGE FORM, QD
     Route: 048
  47. PATANOL [Concomitant]
     Active Substance: OLOPATADINE HYDROCHLORIDE
     Dosage: 0.1 PERCENT INSTILL ONE DROP INTO BOTH EYES TWICE DAILY AT 6 TO 8 HOUR INTERVAL
     Route: 047
  48. NYSTATIN. [Concomitant]
     Active Substance: NYSTATIN
     Route: 048
  49. OXYCODONE HYDROCHLORIDE. [Concomitant]
     Active Substance: OXYCODONE HYDROCHLORIDE
     Indication: PAIN
     Dosage: 5 MG ONE TO TWO TABLETS EVERY FOUR TO SIX HOURS AS NEEDED
     Route: 048

REACTIONS (44)
  - Thrombosis [Unknown]
  - Breast cancer metastatic [Not Recovered/Not Resolved]
  - Muscular weakness [Unknown]
  - Ocular hyperaemia [Unknown]
  - Headache [Unknown]
  - Loss of consciousness [Unknown]
  - Tendonitis [Unknown]
  - Urge incontinence [Unknown]
  - Seroma [Unknown]
  - Osteoarthritis [Unknown]
  - Osteoporosis [Unknown]
  - Neck pain [Unknown]
  - Constipation [Unknown]
  - Oedema peripheral [Unknown]
  - Cardiac failure congestive [Unknown]
  - Embolism [Unknown]
  - Gastric cancer [Unknown]
  - Haematemesis [Unknown]
  - Intervertebral disc degeneration [Unknown]
  - Hypercholesterolaemia [Unknown]
  - Abscess [Unknown]
  - Breast cancer recurrent [Unknown]
  - Osteonecrosis of jaw [Unknown]
  - Herpes zoster [Unknown]
  - Hypoaesthesia [Unknown]
  - Radiation skin injury [Unknown]
  - Oral pain [Unknown]
  - Swelling [Unknown]
  - Pain in extremity [Unknown]
  - Dyspnoea [Recovered/Resolved]
  - Hot flush [Unknown]
  - Arthralgia [Unknown]
  - Fatigue [Unknown]
  - Cerebrovascular accident [Unknown]
  - Nephrogenic anaemia [Unknown]
  - Tooth disorder [Unknown]
  - Metastases to bone [Unknown]
  - Blood urine present [Unknown]
  - Chronic kidney disease [Unknown]
  - Hypertension [Unknown]
  - Back pain [Unknown]
  - Weight decreased [Unknown]
  - Bone pain [Unknown]
  - Chest discomfort [Unknown]

NARRATIVE: CASE EVENT DATE: 2004
